FAERS Safety Report 9012881 (Version 3)
Quarter: 2013Q1

REPORT INFORMATION
  Report Type: Spontaneous
  Country: DE (occurrence: DE)
  Receive Date: 20130114
  Receipt Date: 20130131
  Transmission Date: 20140127
  Serious: Yes (Other)
  Sender: FDA-Public Use
  Company Number: DE-BAYER-2013-004043

PATIENT
  Age: 60 Year
  Sex: Male

DRUGS (1)
  1. AVALOX [Suspect]
     Indication: BRONCHITIS

REACTIONS (3)
  - Myositis [None]
  - Joint swelling [None]
  - Gait disturbance [None]
